FAERS Safety Report 4363803-8 (Version None)
Quarter: 2004Q2

REPORT INFORMATION
  Report Type: 
  Country: None (occurrence: None)
  Receive Date: 20040524
  Receipt Date: 20040514
  Transmission Date: 20050107
  Serious: Yes (Death, Life-Threatening, Hospitalization, Disabling)
  Sender: FDA-Public Use
  Company Number: LB-MERCK-0405USA01197

PATIENT
  Age: 38 Year
  Sex: Male
  Weight: 49 kg

DRUGS (10)
  1. AMPHOTERICIN B [Concomitant]
     Route: 065
  2. ANTIMICROBIAL (UNSPECIFIED) [Concomitant]
     Route: 065
  3. CANCIDAS [Suspect]
     Indication: PYREXIA
     Route: 042
     Dates: start: 20020620, end: 20020620
  4. CANCIDAS [Suspect]
     Route: 042
     Dates: start: 20020621, end: 20020627
  5. PRIMAXIN [Concomitant]
     Indication: PSEUDOMONAS INFECTION
     Route: 042
     Dates: start: 20020613, end: 20020627
  6. KLACID [Concomitant]
     Route: 042
     Dates: start: 20020621, end: 20020627
  7. FLAGYL [Concomitant]
     Indication: BACTERIAL INFECTION
     Route: 042
     Dates: start: 20020615, end: 20020627
  8. NAPROXEN [Concomitant]
     Indication: PAIN
     Route: 048
     Dates: start: 20020621, end: 20020626
  9. OMEPRAZOLE [Concomitant]
     Indication: ANTACID THERAPY
     Route: 042
     Dates: start: 20020613, end: 20020704
  10. ZOFRAN [Concomitant]
     Indication: VOMITING
     Route: 042
     Dates: start: 20020613, end: 20020701

REACTIONS (2)
  - OESOPHAGEAL CARCINOMA [None]
  - THERAPY NON-RESPONDER [None]
